FAERS Safety Report 9482757 (Version 2)
Quarter: 2013Q4

REPORT INFORMATION
  Report Type: Spontaneous
  Country: JP (occurrence: JP)
  Receive Date: 20130828
  Receipt Date: 20131122
  Transmission Date: 20140711
  Serious: Yes (Other)
  Sender: FDA-Public Use
  Company Number: JP-PFIZER INC-2013242084

PATIENT
  Age: 67 Year
  Sex: Female

DRUGS (2)
  1. SUTENT [Suspect]
     Indication: RENAL CELL CARCINOMA
     Dosage: 50 MG, 1X/DAY
     Route: 048
     Dates: start: 20081024
  2. SORAFENIB [Suspect]
     Indication: RENAL CELL CARCINOMA
     Dosage: 800 MG, 2X/DAY
     Route: 048
     Dates: start: 20080808, end: 20080815

REACTIONS (2)
  - Stevens-Johnson syndrome [Unknown]
  - Palmar-plantar erythrodysaesthesia syndrome [Unknown]
